FAERS Safety Report 6087542-0 (Version None)
Quarter: 2009Q1

REPORT INFORMATION
  Report Type: 
  Country: None (occurrence: None)
  Receive Date: 20090223
  Receipt Date: 20090121
  Transmission Date: 20090719
  Serious: No
  Sender: FDA-Public Use
  Company Number: PHHY2009DE06225

PATIENT

DRUGS (10)
  1. TASIGNA [Suspect]
     Indication: CHRONIC MYELOID LEUKAEMIA
     Dosage: 200 MG (2X2)
     Route: 048
     Dates: start: 20081001
  2. AMANTADINE HCL [Concomitant]
     Dosage: 100 MG
  3. SPASMOLYT [Concomitant]
  4. OPIPRAMOL [Concomitant]
  5. PREDNISOLONE [Concomitant]
  6. LEVOCAP [Concomitant]
  7. REQUIP [Concomitant]
     Dosage: UNK
  8. BISOPROLOL [Concomitant]
     Dosage: UNK
  9. ACETYLSALICYLIC ACID SRT [Concomitant]
  10. PANTOZOL [Concomitant]

REACTIONS (4)
  - ERYTHEMA [None]
  - PRURITUS [None]
  - RASH PUSTULAR [None]
  - SKIN DISORDER [None]
